FAERS Safety Report 15862474 (Version 1)
Quarter: 2019Q1

REPORT INFORMATION
  Report Type: Other
  Country: IT (occurrence: IT)
  Receive Date: 20190124
  Receipt Date: 20190124
  Transmission Date: 20190417
  Serious: Yes (Other)
  Sender: FDA-Public Use
  Company Number: IT-MACLEODS PHARMACEUTICALS US LTD-MAC2019019685

PATIENT

DRUGS (2)
  1. PLASIL [Suspect]
     Active Substance: METOCLOPRAMIDE HYDROCHLORIDE
     Indication: NAUSEA
     Dosage: 1 DOSAGE FORM, TOTAL
     Route: 042
     Dates: start: 20180417, end: 20180417
  2. LEVOFLOXACIN. [Suspect]
     Active Substance: LEVOFLOXACIN
     Indication: PNEUMONITIS
     Dosage: 750 MILLIGRAM, TOTAL
     Route: 048
     Dates: start: 20180417, end: 20180417

REACTIONS (1)
  - Enanthema [Recovering/Resolving]

NARRATIVE: CASE EVENT DATE: 20180417
